FAERS Safety Report 7832637-1 (Version None)
Quarter: 2011Q4

REPORT INFORMATION
  Report Type: 
  Country: None (occurrence: None)
  Receive Date: 20111024
  Receipt Date: 20111013
  Transmission Date: 20120403
  Serious: Yes (Hospitalization)
  Sender: FDA-Public Use
  Company Number: US-BIOGENIDEC-2011BI034339

PATIENT
  Age: 52 Year
  Sex: Female

DRUGS (1)
  1. TYSABRI [Suspect]
     Indication: MULTIPLE SCLEROSIS
     Route: 042
     Dates: start: 20070711, end: 20110727

REACTIONS (7)
  - PNEUMONIA BLASTOMYCES [None]
  - APHAGIA [None]
  - URINARY TRACT INFECTION [None]
  - ANAEMIA [None]
  - DIARRHOEA [None]
  - MALAISE [None]
  - GAIT DISTURBANCE [None]
